FAERS Safety Report 9696776 (Version 1)
Quarter: 2013Q4

REPORT INFORMATION
  Report Type: Spontaneous
  Country: JP (occurrence: JP)
  Receive Date: 20131119
  Receipt Date: 20131119
  Transmission Date: 20140711
  Serious: Yes (Other)
  Sender: FDA-Public Use
  Company Number: JP-ELI_LILLY_AND_COMPANY-JP201311002962

PATIENT
  Age: 83 Year
  Sex: Female

DRUGS (3)
  1. FORTEO [Suspect]
     Indication: OSTEOPOROSIS
     Dosage: 20 UG, QD
     Route: 058
     Dates: start: 20131004, end: 20131107
  2. CELECOX [Concomitant]
     Dosage: UNK
     Route: 048
  3. TAKEPRON [Concomitant]
     Dosage: UNK
     Route: 048

REACTIONS (1)
  - Loss of consciousness [Recovered/Resolved]
